FAERS Safety Report 4373462-6 (Version None)
Quarter: 2004Q1

REPORT INFORMATION
  Report Type: 
  Country: None (occurrence: None)
  Receive Date: 20040305
  Receipt Date: 20031216
  Transmission Date: 20041129
  Serious: Yes (Other)
  Sender: FDA-Public Use
  Company Number: 2003UW16781

PATIENT
  Age: 51 Year
  Sex: Male

DRUGS (9)
  1. CRESTOR [Suspect]
     Dosage: 10 MG DAILY PO
     Route: 048
  2. CRESTOR [Concomitant]
     Dosage: 20 MG DAILY PO
     Route: 048
  3. ZEITA [Concomitant]
  4. SLOW NIACIN [Concomitant]
  5. VICOPROFEN [Concomitant]
  6. FLAXSEED [Concomitant]
  7. SAW PALMETTO [Concomitant]
  8. VIAGRA [Concomitant]
  9. ATENOLOL [Concomitant]

REACTIONS (4)
  - BLOOD CHOLESTEROL INCREASED [None]
  - BLOOD TRIGLYCERIDES INCREASED [None]
  - HIGH DENSITY LIPOPROTEIN DECREASED [None]
  - LOW DENSITY LIPOPROTEIN INCREASED [None]
